FAERS Safety Report 8932248 (Version 2)
Quarter: 2013Q1

REPORT INFORMATION
  Report Type: Spontaneous
  Country: FR (occurrence: FR)
  Receive Date: 20121128
  Receipt Date: 20130116
  Transmission Date: 20140127
  Serious: Yes (Life-Threatening, Hospitalization, Other)
  Sender: FDA-Public Use
  Company Number: FR-PFIZER INC-2012296084

PATIENT
  Age: 82 Year
  Sex: Female
  Weight: 52 kg

DRUGS (2)
  1. LYRICA [Suspect]
     Indication: NEURALGIA
     Dosage: 50 MG, 3X/DAY
     Route: 048
     Dates: start: 20121106, end: 20121116
  2. CIFLOX [Concomitant]
     Indication: CYSTITIS
     Dosage: 1000 MG DAILY DIVIDED INTO 2 INTAKES
     Dates: start: 20121106, end: 20121113

REACTIONS (2)
  - Skin necrosis [Not Recovered/Not Resolved]
  - Haematoma [Unknown]
